FAERS Safety Report 15542867 (Version 2)
Quarter: 2019Q1

REPORT INFORMATION
  Report Type: Report from Study
  Country: CA (occurrence: CA)
  Receive Date: 20181023
  Receipt Date: 20190326
  Transmission Date: 20190417
  Serious: Yes (Hospitalization)
  Sender: FDA-Public Use
  Company Number: PHHY2018CA029363

PATIENT
  Age: 73 Year
  Sex: Male

DRUGS (4)
  1. GLEEVEC [Suspect]
     Active Substance: IMATINIB MESYLATE
     Indication: GASTROINTESTINAL STROMAL TUMOUR
     Dosage: 400 MG, QD
     Route: 048
     Dates: start: 20180516
  2. GLEEVEC [Suspect]
     Active Substance: IMATINIB MESYLATE
     Dosage: 400 MG, QD
     Route: 048
  3. GLEEVEC [Suspect]
     Active Substance: IMATINIB MESYLATE
     Dosage: 600 MG, (1X400 MG AND 2X100 MG)
     Route: 048
     Dates: start: 201808
  4. GLEEVEC [Suspect]
     Active Substance: IMATINIB MESYLATE
     Dosage: 400 MG, UNK
     Route: 048

REACTIONS (12)
  - Muscle spasms [Unknown]
  - Swelling [Unknown]
  - Erythema [Unknown]
  - Lethargy [Unknown]
  - Dyspnoea [Unknown]
  - Fatigue [Not Recovered/Not Resolved]
  - Chest discomfort [Unknown]
  - Skin hypertrophy [Unknown]
  - Chest pain [Unknown]
  - Rash [Unknown]
  - Skin fissures [Unknown]
  - Performance status decreased [Unknown]

NARRATIVE: CASE EVENT DATE: 20180802
